FAERS Safety Report 19727535 (Version 1)
Quarter: 2021Q3

REPORT INFORMATION
  Report Type: Spontaneous
  Country: US (occurrence: US)
  Receive Date: 20210819
  Receipt Date: 20210819
  Transmission Date: 20211014
  Serious: Yes (Other)
  Sender: FDA-Public Use
  Company Number: US-AMGEN-USASP2021125889

PATIENT
  Age: 57 Year
  Sex: Male

DRUGS (4)
  1. DOCUSATE SOD [Concomitant]
     Dosage: UNK
  2. OXYCODONE [Concomitant]
     Active Substance: OXYCODONE
     Dosage: UNK
  3. CEPHALEXIN [CEFALEXIN] [Concomitant]
     Active Substance: CEPHALEXIN
     Dosage: UNK
  4. OTEZLA [Suspect]
     Active Substance: APREMILAST
     Indication: PSORIASIS
     Dosage: 30 MILLIGRAM, BID
     Route: 048
     Dates: start: 20190917

REACTIONS (1)
  - Prostatic operation [Not Recovered/Not Resolved]

NARRATIVE: CASE EVENT DATE: 20210813
